FAERS Safety Report 6100208-3 (Version None)
Quarter: 2009Q1

REPORT INFORMATION
  Report Type: 
  Country: None (occurrence: None)
  Receive Date: 20090303
  Receipt Date: 20090223
  Transmission Date: 20090719
  Serious: Yes (Other)
  Sender: FDA-Public Use
  Company Number: GB-ROCHE-616236

PATIENT
  Sex: Male
  Weight: 104 kg

DRUGS (5)
  1. CAPECITABINE [Suspect]
     Indication: COLON CANCER
     Dosage: FOR 14 DAYS OF EACH 21 DAY CYCLE (2.5G BID)
     Route: 048
     Dates: start: 20081125
  2. BEVACIZUMAB [Suspect]
     Indication: COLON CANCER
     Dosage: 725MG
     Route: 042
     Dates: start: 20081125
  3. ATENOLOL [Concomitant]
     Indication: HYPERTENSION
     Route: 048
     Dates: start: 20081121
  4. AMLODIPINE [Concomitant]
     Indication: HYPERTENSION
     Route: 048
     Dates: start: 20081121
  5. MOUTHWASH NOS [Concomitant]
     Dosage: CORSADYL MOUTHWASH
     Route: 048
     Dates: start: 20081218

REACTIONS (1)
  - HYPERLIPIDAEMIA [None]
